FAERS Safety Report 25156186 (Version 1)
Quarter: 2025Q2

REPORT INFORMATION
  Report Type: Spontaneous
  Country: GB (occurrence: GB)
  Receive Date: 20250403
  Receipt Date: 20250403
  Transmission Date: 20250716
  Serious: Yes (Other)
  Sender: MERCK SHARP AND DOHME
  Company Number: GB-009507513-2268343

PATIENT
  Sex: Male

DRUGS (1)
  1. DORAVIRINE [Suspect]
     Active Substance: DORAVIRINE
     Route: 048

REACTIONS (1)
  - Nephrolithiasis [Unknown]
